FAERS Safety Report 12450755 (Version 1)
Quarter: 2016Q2

REPORT INFORMATION
  Report Type: Spontaneous
  Country: US (occurrence: US)
  Receive Date: 20160609
  Receipt Date: 20160609
  Transmission Date: 20160815
  Serious: No
  Sender: FDA-Public Use
  Company Number: US-PERRIGO-15US009491

PATIENT
  Age: 52 Year
  Sex: Male
  Weight: 63.49 kg

DRUGS (1)
  1. PERMETHRIN. [Suspect]
     Active Substance: PERMETHRIN
     Indication: RASH
     Dosage: 60 G, SINGLE
     Route: 061
     Dates: start: 20150817, end: 20150817

REACTIONS (4)
  - Chemical injury [Recovered/Resolved]
  - Off label use [Recovered/Resolved]
  - Condition aggravated [Recovering/Resolving]
  - Incorrect drug administration duration [Recovered/Resolved]

NARRATIVE: CASE EVENT DATE: 20150817
